FAERS Safety Report 5316046-5 (Version None)
Quarter: 2007Q2

REPORT INFORMATION
  Report Type: 
  Country: None (occurrence: None)
  Receive Date: 20070503
  Receipt Date: 20070427
  Transmission Date: 20071010
  Serious: Yes (Other)
  Sender: FDA-Public Use
  Company Number: US-SANOFI-SYNTHELABO-A03200702679

PATIENT
  Sex: Male
  Weight: 77.1 kg

DRUGS (3)
  1. FLUOROURACIL [Suspect]
     Indication: COLORECTAL CANCER
     Route: 042
     Dates: start: 20060101, end: 20060101
  2. ELOXATIN [Suspect]
     Indication: COLORECTAL CANCER
     Route: 042
     Dates: start: 20060101, end: 20060101
  3. LEUCOVORIN CALCIUM [Suspect]
     Indication: COLORECTAL CANCER
     Route: 042
     Dates: start: 20060101, end: 20060101

REACTIONS (2)
  - MYELODYSPLASTIC SYNDROME [None]
  - PANCYTOPENIA [None]
